FAERS Safety Report 4559989-2 (Version None)
Quarter: 2005Q1

REPORT INFORMATION
  Report Type: 
  Country: None (occurrence: None)
  Receive Date: 20050120
  Receipt Date: 20050120
  Transmission Date: 20050727
  Serious: No
  Sender: FDA-Public Use
  Company Number: None

PATIENT
  Age: 48 Year
  Sex: Female
  Weight: 89.3586 kg

DRUGS (3)
  1. PERCOCET [Suspect]
     Indication: BACK PAIN
     Dosage: 5/325 PO Q 4-6 HR
     Route: 048
  2. PERCOCET [Suspect]
     Indication: OSTEOARTHRITIS
     Dosage: 5/325 PO Q 4-6 HR
     Route: 048
  3. PERCOCET [Suspect]
     Indication: RADICULAR PAIN
     Dosage: 5/325 PO Q 4-6 HR
     Route: 048

REACTIONS (2)
  - DRUG EFFECT DECREASED [None]
  - PHARMACEUTICAL PRODUCT COMPLAINT [None]
